FAERS Safety Report 4314807-2 (Version None)
Quarter: 2004Q1

REPORT INFORMATION
  Report Type: 
  Country: None (occurrence: None)
  Receive Date: 20040310
  Receipt Date: 20040229
  Transmission Date: 20041129
  Serious: Yes (Hospitalization)
  Sender: FDA-Public Use
  Company Number: PHEH2004US02517

PATIENT
  Sex: Female

DRUGS (2)
  1. TRILEPTAL [Suspect]
     Indication: NEURALGIA
     Dosage: UNK,UNK
  2. NEURONTIN [Concomitant]

REACTIONS (3)
  - HYPONATRAEMIA [None]
  - NAUSEA [None]
  - PALPITATIONS [None]
